FAERS Safety Report 9791469 (Version 1)
Quarter: 2014Q1

REPORT INFORMATION
  Report Type: Report from Study
  Country: AR (occurrence: AR)
  Receive Date: 20140101
  Receipt Date: 20140101
  Transmission Date: 20141002
  Serious: Yes (Other)
  Sender: FDA-Public Use
  Company Number: PHHY2013AR153444

PATIENT
  Sex: Male

DRUGS (2)
  1. EXFORGE [Suspect]
     Indication: HYPERTENSION
     Dosage: 1 DF (160/5MG) DAILY
     Route: 048
  2. SINTROM [Suspect]
     Indication: CARDIAC DISORDER
     Dosage: UNK UKN, UNK
     Route: 048

REACTIONS (1)
  - Maculopathy [Not Recovered/Not Resolved]
